FAERS Safety Report 20016592 (Version 1)
Quarter: 2021Q4

REPORT INFORMATION
  Report Type: Spontaneous
  Country: US (occurrence: None)
  Receive Date: 20211104
  Receipt Date: 20211104
  Transmission Date: 20220303
  Serious: No
  Sender: FDA-Public Use
  Company Number: None

PATIENT

DRUGS (2)
  1. ENTRESTO [Suspect]
     Active Substance: SACUBITRIL\VALSARTAN
     Indication: Product used for unknown indication
  2. CARVEDILOL [Suspect]
     Active Substance: CARVEDILOL
     Indication: Product used for unknown indication

REACTIONS (9)
  - Product use complaint [None]
  - Treatment noncompliance [None]
  - Self-medication [None]
  - Blood pressure decreased [None]
  - Product dispensing error [None]
  - Product prescribing issue [None]
  - Wrong strength [None]
  - Wrong dose [None]
  - Product selection error [None]
